FAERS Safety Report 9697321 (Version 2)
Quarter: 2014Q1

REPORT INFORMATION
  Report Type: Spontaneous
  Country: FR (occurrence: FR)
  Receive Date: 20131120
  Receipt Date: 20140314
  Transmission Date: 20141002
  Serious: Yes (Hospitalization)
  Sender: FDA-Public Use
  Company Number: FR-ACTELION-A-CH2013-91269

PATIENT
  Age: 49 Year
  Sex: Female
  Weight: 65 kg

DRUGS (2)
  1. TRACLEER [Suspect]
     Indication: SKIN ULCER
     Dosage: 62.5 MG, BID
     Route: 048
     Dates: start: 20130201, end: 20130601
  2. METHOTREXATE [Concomitant]
     Dosage: UNK
     Dates: start: 20130201, end: 20130601

REACTIONS (3)
  - Myalgia [Unknown]
  - Headache [Recovered/Resolved]
  - Oedema [Recovered/Resolved]
